FAERS Safety Report 6272287-4 (Version None)
Quarter: 2009Q3

REPORT INFORMATION
  Report Type: 
  Country: None (occurrence: None)
  Receive Date: 20090717
  Receipt Date: 20090710
  Transmission Date: 20100115
  Serious: Yes (Disabling, Other)
  Sender: FDA-Public Use
  Company Number: US-ELI_LILLY_AND_COMPANY-US200907002357

PATIENT
  Sex: Male

DRUGS (18)
  1. HUMALOG [Suspect]
     Indication: DIABETES MELLITUS
  2. FORTEO [Suspect]
     Dosage: 20 U, DAILY (1/D)
     Dates: start: 20090201
  3. HYDROCHLOROTHIAZIDE [Concomitant]
  4. CRESTOR [Concomitant]
  5. LEVOTHYROXINE SODIUM [Concomitant]
  6. CARVEDILOL [Concomitant]
  7. LISINOPRIL [Concomitant]
  8. CITALOPRAM HYDROBROMIDE [Concomitant]
  9. HYDROXYZINE [Concomitant]
  10. ADVAIR HFA [Concomitant]
  11. DURAGESIC-100 [Concomitant]
  12. VITAMIN D3 [Concomitant]
  13. CALCIUM [Concomitant]
  14. ALBUTEROL [Concomitant]
  15. LANTUS [Concomitant]
  16. HYDROCODONE [Concomitant]
  17. TYLENOL (CAPLET) [Concomitant]
  18. FLURAZEPAM [Concomitant]

REACTIONS (10)
  - ARTHRALGIA [None]
  - ARTHRODESIS [None]
  - BALANCE DISORDER [None]
  - CONTUSION [None]
  - EXPIRED DRUG ADMINISTERED [None]
  - FALL [None]
  - ROAD TRAFFIC ACCIDENT [None]
  - SKIN LACERATION [None]
  - THERMAL BURN [None]
  - WRONG TECHNIQUE IN DRUG USAGE PROCESS [None]
